FAERS Safety Report 4340481-5 (Version None)
Quarter: 2004Q2

REPORT INFORMATION
  Report Type: 
  Country: None (occurrence: None)
  Receive Date: 20040414
  Receipt Date: 20040331
  Transmission Date: 20050107
  Serious: Yes (Hospitalization)
  Sender: FDA-Public Use
  Company Number: 002#2#2004-00070 (0)

PATIENT
  Sex: Female

DRUGS (4)
  1. REGLAN [Suspect]
  2. ANTIDEPRESSANTS [Concomitant]
  3. DIAZEPAM [Concomitant]
  4. CLONAZEPAM [Concomitant]

REACTIONS (3)
  - ANXIETY [None]
  - DEPRESSION [None]
  - SUICIDAL IDEATION [None]
